FAERS Safety Report 25957504 (Version 1)
Quarter: 2025Q4

REPORT INFORMATION
  Report Type: Spontaneous
  Country: US (occurrence: US)
  Receive Date: 20251024
  Receipt Date: 20251024
  Transmission Date: 20260117
  Serious: Yes (Death, Disabling, Other)
  Sender: CHATTEM
  Company Number: US-OPELLA-2025OHG030761

PATIENT
  Sex: Male

DRUGS (1)
  1. GOLD BOND ORIGINAL STRENGTH [Suspect]
     Active Substance: MENTHOL
     Indication: Product used for unknown indication
     Route: 065
     Dates: start: 1957, end: 2025

REACTIONS (4)
  - Epithelioid mesothelioma [Fatal]
  - Mesothelioma malignant [Fatal]
  - Metastases to peritoneum [Fatal]
  - Exposure to chemical pollution [Fatal]

NARRATIVE: CASE EVENT DATE: 20250701
